FAERS Safety Report 5335657-4 (Version None)
Quarter: 2007Q2

REPORT INFORMATION
  Report Type: 
  Country: None (occurrence: None)
  Receive Date: 20070322
  Receipt Date: 20061212
  Transmission Date: 20071010
  Serious: No
  Sender: FDA-Public Use
  Company Number: 2006US002890

PATIENT
  Age: 72 Year
  Sex: Female

DRUGS (1)
  1. VESLCARE (SOLIFENACIN) TABLET, 5MG [Suspect]
     Indication: HYPERTONIC BLADDER
     Dosage: 5 MG, ORAL
     Route: 048
     Dates: start: 20061204

REACTIONS (6)
  - CONSTIPATION [None]
  - COUGH [None]
  - GASTROOESOPHAGEAL REFLUX DISEASE [None]
  - RHINORRHOEA [None]
  - SINUS HEADACHE [None]
  - STRESS URINARY INCONTINENCE [None]
